FAERS Safety Report 18249059 (Version 1)
Quarter: 2020Q3

REPORT INFORMATION
  Report Type: Report from Study
  Country: FR (occurrence: FR)
  Receive Date: 20200909
  Receipt Date: 20200909
  Transmission Date: 20201103
  Serious: Yes (Hospitalization, Other)
  Sender: FDA-Public Use
  Company Number: FR-CELLTRION INC.-2018FR019736

PATIENT

DRUGS (9)
  1. INEXIUM [Concomitant]
     Active Substance: ESOMEPRAZOLE
     Dosage: 20 MG, DAILY
     Route: 048
     Dates: end: 20171218
  2. LAMALINE [ATROPA BELLADONNA EXTRACT;CAFFEINE;PAPAVER SOMNIFERUM TINCTU [Concomitant]
     Active Substance: ACETAMINOPHEN\BELLADONNA LEAF\CAFFEINE\OPIUM
     Dosage: UNK
     Route: 048
     Dates: end: 20171218
  3. NOVATREX (METHOTREXATE) [Concomitant]
     Active Substance: METHOTREXATE SODIUM
     Indication: PSORIATIC ARTHROPATHY
     Dosage: 15 MG, PER WEEK
     Route: 048
     Dates: end: 20171218
  4. REMSIMA [Suspect]
     Active Substance: INFLIXIMAB
     Indication: SPONDYLITIS
     Dosage: 300 MG (5 MG/KG)
     Route: 065
     Dates: start: 20170613, end: 20170613
  5. REMSIMA [Suspect]
     Active Substance: INFLIXIMAB
     Dosage: 300 MG (5 MG/KG)
     Route: 065
     Dates: start: 20170906, end: 20170906
  6. CYMBALTA [Concomitant]
     Active Substance: DULOXETINE HYDROCHLORIDE
     Dosage: 30 MG, DAILY
     Route: 048
     Dates: end: 20171218
  7. NAPROXENE [Concomitant]
     Active Substance: NAPROXEN
     Indication: PSORIATIC ARTHROPATHY
     Dosage: 550 MG, BID
     Route: 048
     Dates: end: 20171218
  8. SPECIAFOLDINE [Concomitant]
     Active Substance: FOLIC ACID
     Dosage: 10 MG, PER WEEK
     Route: 048
     Dates: end: 20171218
  9. ALPRAZOLAM. [Concomitant]
     Active Substance: ALPRAZOLAM
     Dosage: 0.25 MG, DAILY
     Route: 048
     Dates: end: 20171218

REACTIONS (5)
  - Intervertebral disc protrusion [Unknown]
  - Product use issue [Unknown]
  - Surgery [Unknown]
  - Therapy interrupted [Unknown]
  - Cauda equina syndrome [Recovered/Resolved]

NARRATIVE: CASE EVENT DATE: 20171020
